FAERS Safety Report 8163229-5 (Version None)
Quarter: 2012Q1

REPORT INFORMATION
  Report Type: 
  Country: None (occurrence: None)
  Receive Date: 20120224
  Receipt Date: 20110802
  Transmission Date: 20120608
  Serious: No
  Sender: FDA-Public Use
  Company Number: US-PFIZER INC-K201100908

PATIENT
  Sex: Male
  Weight: 64.853 kg

DRUGS (2)
  1. FLECTOR [Suspect]
     Indication: ARTHRALGIA
     Dosage: UNK PATCH, UNK
     Route: 061
     Dates: start: 20110701, end: 20110101
  2. INSULIN [Concomitant]
     Indication: DIABETES MELLITUS
     Dosage: 30 IU, 1X/DAY
     Route: 058

REACTIONS (1)
  - DRUG INEFFECTIVE [None]
